FAERS Safety Report 8809865 (Version 1)
Quarter: 2012Q4

REPORT INFORMATION
  Report Type: 
  Country: FR (occurrence: FR)
  Receive Date: 20120926
  Receipt Date: 20120926
  Transmission Date: 20130627
  Serious: Yes (Other)
  Sender: FDA-Public Use
  Company Number: FR-ROCHE-1122910

PATIENT
  Sex: Female

DRUGS (6)
  1. BONVIVA [Suspect]
     Indication: OSTEOPOROSIS
     Route: 042
  2. OROCAL [Concomitant]
     Indication: OSTEOPOROSIS
  3. CELIPROLOL [Concomitant]
  4. APROVEL [Concomitant]
  5. KARDEGIC [Concomitant]
  6. OMEPRAZOL [Concomitant]

REACTIONS (2)
  - Extravasation [Unknown]
  - Oedema [Recovering/Resolving]
